FAERS Safety Report 7277539-7 (Version None)
Quarter: 2011Q1

REPORT INFORMATION
  Report Type: 
  Country: None (occurrence: None)
  Receive Date: 20110207
  Receipt Date: 20110128
  Transmission Date: 20110831
  Serious: Yes (Other)
  Sender: FDA-Public Use
  Company Number: US-JNJFOC-20100805141

PATIENT
  Sex: Male

DRUGS (4)
  1. DEXAMETHASONE [Suspect]
     Indication: INFLAMMATION
     Route: 065
  2. LEVAQUIN [Suspect]
     Indication: URINARY TRACT INFECTION
     Route: 048
  3. CIPROFLOXACIN [Suspect]
     Indication: INFECTION
     Route: 048
  4. DEXAMETHASONE [Suspect]
     Indication: BACTERIAL INFECTION
     Route: 065

REACTIONS (5)
  - ROTATOR CUFF SYNDROME [None]
  - OSTEOARTHRITIS [None]
  - ARTHRITIS [None]
  - MUSCLE RUPTURE [None]
  - BURSITIS [None]
